FAERS Safety Report 13700376 (Version 4)
Quarter: 2017Q4

REPORT INFORMATION
  Report Type: Spontaneous
  Country: RO (occurrence: RO)
  Receive Date: 20170629
  Receipt Date: 20171013
  Transmission Date: 20180320
  Serious: Yes (Other)
  Sender: FDA-Public Use
  Company Number: RO-ASTRAZENECA-2017SE66930

PATIENT
  Age: 58 Year
  Sex: Male

DRUGS (4)
  1. ATACAND [Concomitant]
     Active Substance: CANDESARTAN CILEXETIL
  2. BYDUREON [Suspect]
     Active Substance: EXENATIDE
     Indication: TYPE 2 DIABETES MELLITUS
     Route: 065
     Dates: start: 201703
  3. FORXIGA [Suspect]
     Active Substance: DAPAGLIFLOZIN
     Indication: TYPE 2 DIABETES MELLITUS
     Route: 048
     Dates: start: 201703
  4. CRESTOR [Concomitant]
     Active Substance: ROSUVASTATIN CALCIUM

REACTIONS (4)
  - Muscle spasms [Unknown]
  - Nausea [Unknown]
  - Thyroid neoplasm [Unknown]
  - Constipation [Unknown]
